FAERS Safety Report 15739076 (Version 1)
Quarter: 2018Q4

REPORT INFORMATION
  Report Type: Spontaneous
  Country: CH (occurrence: CH)
  Receive Date: 20181219
  Receipt Date: 20181219
  Transmission Date: 20190205
  Serious: Yes (Other)
  Sender: FDA-Public Use
  Company Number: CH-TEVA-2018-CH-988755

PATIENT
  Age: 32 Year
  Sex: Male

DRUGS (27)
  1. CIPROFLOXACINE [Suspect]
     Active Substance: CIPROFLOXACIN
     Route: 048
     Dates: start: 20181008, end: 20181114
  2. TIENAM [Suspect]
     Active Substance: CILASTATIN SODIUM\IMIPENEM
     Route: 042
     Dates: start: 20181009, end: 20181114
  3. ZEFFIX [Suspect]
     Active Substance: LAMIVUDINE
     Route: 048
     Dates: start: 20181005
  4. PRAZINE [Concomitant]
     Dosage: AS NECESSARY
     Dates: start: 20180829
  5. TRAMAL [Concomitant]
     Active Substance: TRAMADOL
     Dosage: AS NECESSARY
     Dates: start: 20180914, end: 20181120
  6. CLEXANE [Suspect]
     Active Substance: ENOXAPARIN SODIUM
     Route: 058
     Dates: start: 20180910, end: 20181031
  7. LUVIT D3 [Concomitant]
     Active Substance: CHOLECALCIFEROL
     Dates: start: 20180921
  8. PYRAZINAMIDE. [Concomitant]
     Active Substance: PYRAZINAMIDE
     Dates: start: 20181003, end: 20181009
  9. AMIKIN [Suspect]
     Active Substance: AMIKACIN SULFATE
     Route: 042
     Dates: start: 20181008, end: 20181114
  10. ZYPREXA [Suspect]
     Active Substance: OLANZAPINE
     Route: 048
     Dates: start: 20180903
  11. REFOBACIN [Concomitant]
     Active Substance: GENTAMICIN SULFATE
     Dates: start: 20181003, end: 20181007
  12. CIPROFLOXACINE [Suspect]
     Active Substance: CIPROFLOXACIN
     Route: 048
     Dates: start: 20181007, end: 20181008
  13. MEPHAMESONE [Suspect]
     Active Substance: DEXAMETHASONE
     Route: 042
     Dates: start: 20181003, end: 20181009
  14. ISOZIDE [Suspect]
     Active Substance: ISONIAZID
     Route: 042
     Dates: start: 20181003, end: 20181017
  15. PURSANA [Concomitant]
     Active Substance: FIG FRUIT OIL\SORBITOL
     Dosage: AS NECESSARY
     Dates: start: 20180902, end: 20181124
  16. EMB-FATOL [Concomitant]
     Dates: start: 20181003, end: 20181009
  17. PASSPERTIN [Concomitant]
     Active Substance: METOCLOPRAMIDE HYDROCHLORIDE
     Dosage: AS NECESSARY
     Dates: start: 20181003
  18. VITAMIN B6 [Concomitant]
     Active Substance: PYRIDOXINE HYDROCHLORIDE
     Dates: start: 20181005, end: 20181022
  19. NEXIUM [Suspect]
     Active Substance: ESOMEPRAZOLE MAGNESIUM
     Route: 048
     Dates: start: 20180823, end: 20181128
  20. LAXOBERON [Concomitant]
     Active Substance: SODIUM PICOSULFATE
     Dates: start: 20180829, end: 20181128
  21. EUTHYROX [Concomitant]
     Active Substance: LEVOTHYROXINE SODIUM
     Dates: start: 20180924, end: 20181126
  22. AMOXICILLIN+CLAVULANIC ACID [Concomitant]
     Active Substance: AMOXICILLIN\CLAVULANIC ACID
     Dates: start: 20181003, end: 20181007
  23. CIPROFLOXACINE [Concomitant]
     Active Substance: CIPROFLOXACIN
     Dates: start: 20181007, end: 20181114
  24. RIFAMPICINE [Suspect]
     Active Substance: RIFAMPIN
     Route: 042
     Dates: start: 20181003, end: 20181019
  25. DAFALGAN [Suspect]
     Active Substance: ACETAMINOPHEN
     Dosage: MAX 4X/J ; AS NECESSARY
     Route: 048
     Dates: start: 20180911, end: 20181104
  26. TEMESTA [Concomitant]
     Active Substance: LORAZEPAM
     Dosage: AS NECESSARY
  27. SYNACTHENE [Concomitant]
     Dates: start: 20180928, end: 20180928

REACTIONS (1)
  - Thrombocytopenia [Recovering/Resolving]

NARRATIVE: CASE EVENT DATE: 20181015
